FAERS Safety Report 7330833-3 (Version None)
Quarter: 2011Q1

REPORT INFORMATION
  Report Type: 
  Country: None (occurrence: None)
  Receive Date: 20110304
  Receipt Date: 20110228
  Transmission Date: 20110831
  Serious: No
  Sender: FDA-Public Use
  Company Number: US-PFIZER INC-2011043601

PATIENT
  Sex: Female
  Weight: 81.633 kg

DRUGS (2)
  1. SERTRALINE HYDROCHLORIDE [Suspect]
     Indication: DEPRESSION
     Dosage: 100 MG, DAILY
     Route: 048
     Dates: start: 20101101, end: 20110201
  2. ACETAMINOPHEN [Concomitant]
     Dosage: UNK

REACTIONS (3)
  - PRODUCT ODOUR ABNORMAL [None]
  - FEELING ABNORMAL [None]
  - PRODUCT TASTE ABNORMAL [None]
